FAERS Safety Report 6106799-0 (Version None)
Quarter: 2009Q1

REPORT INFORMATION
  Report Type: 
  Country: None (occurrence: None)
  Receive Date: 20090304
  Receipt Date: 20090218
  Transmission Date: 20090719
  Serious: Yes (Hospitalization)
  Sender: FDA-Public Use
  Company Number: FABR-1000631

PATIENT
  Age: 43 Year
  Sex: Male
  Weight: 67 kg

DRUGS (12)
  1. FABRAZYME [Suspect]
     Indication: FABRY'S DISEASE
     Dosage: 70 MG, QOW, INTRAVENOUS
     Route: 042
     Dates: start: 20030101
  2. DICLOFENAC (DICLOFENAC) [Concomitant]
  3. PANTOPRAZOLE SODIUM [Concomitant]
  4. DIMENHYDRINATE [Concomitant]
  5. SOLU-DECORTIN-H (PREDNISOLONE SUCCINATE) [Concomitant]
  6. .............. [Concomitant]
  7. DIPIDOLOR (PIRITRAMIDE) [Concomitant]
  8. TETRAZEPAM (TETRAZEPAM) [Concomitant]
  9. TEGRETOL [Concomitant]
  10. LYRICA [Concomitant]
  11. LEVOTHYROXINE SODIUM [Concomitant]
  12. AMITRIPTYLINE HYDROCHLORIDE [Concomitant]

REACTIONS (12)
  - ABDOMINAL PAIN UPPER [None]
  - ACTIVATED PARTIAL THROMBOPLASTIN TIME PROLONGED [None]
  - BLOOD GLUCOSE INCREASED [None]
  - GAMMA-GLUTAMYLTRANSFERASE INCREASED [None]
  - HAEMATOCRIT DECREASED [None]
  - HAEMOGLOBIN DECREASED [None]
  - INTERVERTEBRAL DISC PROTRUSION [None]
  - NAUSEA [None]
  - OSTEOCHONDROSIS [None]
  - PAIN [None]
  - SENSORY LOSS [None]
  - SPINAL OSTEOARTHRITIS [None]
